FAERS Safety Report 5850906-1 (Version None)
Quarter: 2008Q3

REPORT INFORMATION
  Report Type: 
  Country: None (occurrence: None)
  Receive Date: 20080820
  Receipt Date: 20080729
  Transmission Date: 20090109
  Serious: Yes (Hospitalization)
  Sender: FDA-Public Use
  Company Number: CA-ELI_LILLY_AND_COMPANY-CA200807006147

PATIENT
  Sex: Female

DRUGS (2)
  1. ZYPREXA [Suspect]
     Indication: DEMENTIA
     Dosage: 10 MG, 2/D
     Route: 048
  2. ZYPREXA [Suspect]
     Dosage: 5 MG, 2/D
     Dates: start: 20080728

REACTIONS (2)
  - HOSPITALISATION [None]
  - PARKINSONISM [None]
